FAERS Safety Report 25670147 (Version 2)
Quarter: 2025Q3

REPORT INFORMATION
  Report Type: Report from Study
  Country: US (occurrence: US)
  Receive Date: 20250812
  Receipt Date: 20250829
  Transmission Date: 20251020
  Serious: Yes (Death, Hospitalization)
  Sender: EISAI
  Company Number: US-Eisai-EC-2025-194611

PATIENT
  Age: 61 Year
  Sex: Male

DRUGS (1)
  1. LENVIMA [Suspect]
     Active Substance: LENVATINIB
     Indication: Renal cancer
     Route: 048
     Dates: start: 2025, end: 20250803

REACTIONS (2)
  - Death [Fatal]
  - Gastrointestinal haemorrhage [Not Recovered/Not Resolved]

NARRATIVE: CASE EVENT DATE: 20250804
